FAERS Safety Report 5792316-1 (Version None)
Quarter: 2008Q2

REPORT INFORMATION
  Report Type: 
  Country: None (occurrence: None)
  Receive Date: 20080625
  Receipt Date: 20080421
  Transmission Date: 20081010
  Serious: Yes (Other)
  Sender: FDA-Public Use
  Company Number: US-WYE-H03683008

PATIENT
  Age: 70 Year
  Sex: Female
  Weight: 69.01 kg

DRUGS (10)
  1. TORISEL [Suspect]
     Indication: METASTATIC RENAL CELL CARCINOMA
     Dosage: 25 MG 1X PER 1 WK, INTRAVENOUS
     Route: 042
     Dates: start: 20071030, end: 20080225
  2. PLAVIX [Concomitant]
  3. METOPROLOL TARTRATE [Concomitant]
  4. PROVIGIL [Concomitant]
  5. ASPIRIN [Concomitant]
  6. SENOKOT [Concomitant]
  7. PRILOSEC [Concomitant]
  8. PERCOCET [Concomitant]
  9. GABAPENTIN [Concomitant]
  10. SIMVASTATIN [Concomitant]

REACTIONS (2)
  - INTERSTITIAL LUNG DISEASE [None]
  - OEDEMA PERIPHERAL [None]
